FAERS Safety Report 4354305-3 (Version None)
Quarter: 2004Q2

REPORT INFORMATION
  Report Type: 
  Country: None (occurrence: None)
  Receive Date: 20040503
  Receipt Date: 20030912
  Transmission Date: 20050107
  Serious: Yes (Hospitalization, Other)
  Sender: FDA-Public Use
  Company Number: PHEH2003US08421

PATIENT
  Age: 80 Year
  Sex: Female
  Weight: 44.4 kg

DRUGS (4)
  1. DIOVAN HCT [Suspect]
     Indication: HYPERTENSION
     Dosage: ONE TABLET DAILY, ORAL
     Route: 048
     Dates: start: 20030815, end: 20030825
  2. FOSAMAX [Concomitant]
  3. CALCIUM [Concomitant]
  4. MULTIVITAMINS (PANTHENOL, RETINOL) [Concomitant]

REACTIONS (3)
  - ASTHENIA [None]
  - BLOOD CHLORIDE DECREASED [None]
  - HYPONATRAEMIA [None]
